FAERS Safety Report 6679300-0 (Version None)
Quarter: 2010Q2

REPORT INFORMATION
  Report Type: 
  Country: None (occurrence: None)
  Receive Date: 20100408
  Receipt Date: 20090713
  Transmission Date: 20101027
  Serious: No
  Sender: FDA-Public Use
  Company Number: 2009-00466

PATIENT
  Age: 57 Year
  Sex: Male
  Weight: 90.7194 kg

DRUGS (3)
  1. ZICAM COLD REMEDY NASAL GEL [Suspect]
     Dosage: QD, WINTER 2008 -
     Dates: start: 20080101
  2. ALLOPURINOL [Concomitant]
  3. BENICAR [Concomitant]

REACTIONS (3)
  - ANOSMIA [None]
  - DYSPNOEA [None]
  - NASAL DISCOMFORT [None]
